FAERS Safety Report 13506202 (Version 1)
Quarter: 2017Q2

REPORT INFORMATION
  Report Type: Spontaneous
  Country: US (occurrence: US)
  Receive Date: 20170502
  Receipt Date: 20170502
  Transmission Date: 20170830
  Serious: Yes (Life-Threatening)
  Sender: FDA-Public Use
  Company Number: US-ROCHE-1285290

PATIENT
  Age: 57 Year
  Sex: Male
  Weight: 60.19 kg

DRUGS (109)
  1. SODIUM CHLORIDE. [Concomitant]
     Active Substance: SODIUM CHLORIDE
     Dosage: 1 SYNRINGE
     Route: 050
     Dates: start: 20130422, end: 20130427
  2. CARBOPLATIN. [Concomitant]
     Active Substance: CARBOPLATIN
     Indication: NON-SMALL CELL LUNG CANCER
     Route: 042
     Dates: start: 20130215, end: 20130401
  3. SODIUM BICARBONATE. [Concomitant]
     Active Substance: SODIUM BICARBONATE
     Dosage: 1115 ML AT THE RATE 50 MLS/HR
     Route: 042
     Dates: start: 20130412, end: 20130413
  4. POTASSIUM CHLORIDE. [Concomitant]
     Active Substance: POTASSIUM CHLORIDE
     Route: 048
     Dates: start: 20130425, end: 20130427
  5. DEXTROSE. [Concomitant]
     Active Substance: DEXTROSE
     Dosage: 1115 ML AT THE RATE 100 ML/HR
     Route: 042
     Dates: start: 20130413, end: 20130413
  6. DEXTROSE. [Concomitant]
     Active Substance: DEXTROSE
     Dosage: 15 TO 30 MG
     Route: 048
     Dates: start: 20130409, end: 20130422
  7. ALBUMIN HUMAN [Concomitant]
     Active Substance: ALBUMIN HUMAN
     Dosage: 100 MLS/HR
     Route: 042
     Dates: start: 20130411, end: 20130412
  8. ACETAMINOPHEN. [Concomitant]
     Active Substance: ACETAMINOPHEN
     Dosage: DATE OF LAST DOSE ADMINISTERED 23/APR/2013
     Route: 065
     Dates: start: 20130422, end: 20130427
  9. ACETAMINOPHEN. [Concomitant]
     Active Substance: ACETAMINOPHEN
     Dosage: 100 ML AT THE RATE 400 MLS/HR
     Route: 042
     Dates: start: 20130415, end: 20130416
  10. ACETAMINOPHEN. [Concomitant]
     Active Substance: ACETAMINOPHEN
     Route: 048
     Dates: start: 20130415, end: 20130415
  11. COUMADIN [Concomitant]
     Active Substance: WARFARIN SODIUM
     Route: 048
     Dates: start: 20130423, end: 20130423
  12. XYLOCAINE [Concomitant]
     Active Substance: LIDOCAINE HYDROCHLORIDE
     Dosage: TIDAC, EXTRA DOSE ONCE
     Route: 048
     Dates: start: 20130424, end: 20130427
  13. XYLOCAINE [Concomitant]
     Active Substance: LIDOCAINE HYDROCHLORIDE
     Route: 048
     Dates: start: 20130422, end: 20130422
  14. XYLOCAINE [Concomitant]
     Active Substance: LIDOCAINE HYDROCHLORIDE
     Route: 048
     Dates: start: 20130408, end: 20130410
  15. HEPARIN SODIUM. [Concomitant]
     Active Substance: HEPARIN SODIUM
     Dosage: 5000 UNITS
     Route: 065
     Dates: start: 20130415, end: 20130415
  16. MORPHINE SULFATE. [Concomitant]
     Active Substance: MORPHINE SULFATE
     Route: 048
     Dates: start: 20130422, end: 20130422
  17. INSULIN HUMAN REGULAR [Concomitant]
     Active Substance: INSULIN HUMAN
     Route: 058
     Dates: start: 20130411, end: 20130420
  18. FAT EMULSION NOS [Concomitant]
     Active Substance: EGG PHOSPHOLIPIDS\SAFFLOWER OIL\SOYBEAN OIL
     Dosage: 250 ML AT THE RATE 21 ML/HR
     Route: 042
     Dates: start: 20130417, end: 20130419
  19. FAT EMULSION NOS [Concomitant]
     Active Substance: EGG PHOSPHOLIPIDS\SAFFLOWER OIL\SOYBEAN OIL
     Dosage: 250 ML AT THE RATE 21 MLS/HR
     Route: 042
     Dates: start: 20130414, end: 20130415
  20. IOHEXOL [Concomitant]
     Active Substance: IOHEXOL
     Route: 042
     Dates: start: 20130415, end: 20130415
  21. ETOMIDATE. [Concomitant]
     Active Substance: ETOMIDATE
     Route: 050
     Dates: start: 20130412, end: 20130412
  22. PROPOFOL. [Concomitant]
     Active Substance: PROPOFOL
     Route: 042
     Dates: start: 20130410, end: 20130412
  23. PROPOFOL. [Concomitant]
     Active Substance: PROPOFOL
     Route: 065
     Dates: start: 20130410, end: 20130410
  24. CIPROFLOXACIN. [Concomitant]
     Active Substance: CIPROFLOXACIN
     Dosage: 200 ML AT THE RATE 200 MLS/HR
     Route: 065
     Dates: start: 20130408
  25. HYDROMORPHONE HCL [Concomitant]
     Active Substance: HYDROMORPHONE HYDROCHLORIDE
     Route: 042
     Dates: start: 20130409, end: 20130410
  26. SODIUM CHLORIDE. [Concomitant]
     Active Substance: SODIUM CHLORIDE
     Dosage: 2 SYRINGES
     Route: 065
     Dates: start: 20120422, end: 20120422
  27. SODIUM CHLORIDE. [Concomitant]
     Active Substance: SODIUM CHLORIDE
     Dosage: 1 SYRINGE
     Route: 065
     Dates: start: 20130412, end: 20130412
  28. SODIUM CHLORIDE. [Concomitant]
     Active Substance: SODIUM CHLORIDE
     Dosage: 1000 ML AT THE RATE 125 MLS/HR
     Route: 042
     Dates: start: 20130410, end: 20130410
  29. SODIUM CHLORIDE. [Concomitant]
     Active Substance: SODIUM CHLORIDE
     Dosage: 1000 ML AT THE RATE 125 MLS/HR
     Route: 042
     Dates: start: 20130409, end: 20130410
  30. SODIUM BICARBONATE. [Concomitant]
     Active Substance: SODIUM BICARBONATE
     Dosage: 1115 ML AT THE RATE 10 MLS/HR
     Route: 042
     Dates: start: 20130414, end: 20130415
  31. POTASSIUM CHLORIDE. [Concomitant]
     Active Substance: POTASSIUM CHLORIDE
     Dosage: 1115 ML/125 MLS/HR, LAST ADMINISTERED DOSE 11/APR/2013
     Route: 042
     Dates: start: 20130411
  32. FUROSEMIDE. [Concomitant]
     Active Substance: FUROSEMIDE
     Route: 042
     Dates: start: 20130411, end: 20130411
  33. MEGESTROL ACETATE. [Concomitant]
     Active Substance: MEGESTROL ACETATE
     Route: 065
     Dates: start: 20130424, end: 20130427
  34. FAT EMULSION NOS [Concomitant]
     Active Substance: EGG PHOSPHOLIPIDS\SAFFLOWER OIL\SOYBEAN OIL
     Dosage: 250 ML AT THE RATE 21ML/HR
     Route: 065
     Dates: start: 20130419, end: 20130420
  35. LEVALBUTEROL HYDROCHLORIDE. [Concomitant]
     Active Substance: LEVALBUTEROL HYDROCHLORIDE
     Route: 065
     Dates: start: 20130413, end: 20130413
  36. FENTANYL. [Concomitant]
     Active Substance: FENTANYL
     Route: 065
     Dates: start: 20130417, end: 20130427
  37. BUDESONIDE. [Concomitant]
     Active Substance: BUDESONIDE
     Dosage: 2 PUFFS
     Route: 065
     Dates: start: 20130411, end: 20130415
  38. POTASSIUM CHLORIDE. [Concomitant]
     Active Substance: POTASSIUM CHLORIDE
     Dosage: 270 ML AT THE RATE 125 ML/HR
     Route: 042
     Dates: start: 20130410, end: 20130410
  39. DEXTROSE. [Concomitant]
     Active Substance: DEXTROSE
     Dosage: 270 ML AT THE RATE 67 MLS/HR
     Route: 042
     Dates: start: 20130411, end: 20130411
  40. FUROSEMIDE. [Concomitant]
     Active Substance: FUROSEMIDE
     Route: 042
     Dates: start: 20130421, end: 20130421
  41. COUMADIN [Concomitant]
     Active Substance: WARFARIN SODIUM
     Route: 048
     Dates: start: 20130422, end: 20130422
  42. FAT EMULSION NOS [Concomitant]
     Active Substance: EGG PHOSPHOLIPIDS\SAFFLOWER OIL\SOYBEAN OIL
     Dosage: 250 ML AT THE RATE 21MLS/HR
     Route: 042
     Dates: start: 20130420, end: 20130421
  43. LEVALBUTEROL HYDROCHLORIDE. [Concomitant]
     Active Substance: LEVALBUTEROL HYDROCHLORIDE
     Route: 065
     Dates: start: 20130414, end: 20130414
  44. RANOLAZINE. [Concomitant]
     Active Substance: RANOLAZINE
     Route: 048
     Dates: start: 20130415, end: 20130415
  45. ADVAIR DISKUS [Concomitant]
     Active Substance: FLUTICASONE PROPIONATE\SALMETEROL XINAFOATE
     Dosage: 1 PUFF
     Route: 065
     Dates: start: 20130415, end: 20130427
  46. HYDROCORTISONE. [Concomitant]
     Active Substance: HYDROCORTISONE
     Route: 065
     Dates: start: 20130413
  47. BACITRACIN. [Concomitant]
     Active Substance: BACITRACIN
     Dosage: 50000 UNITS
     Route: 065
     Dates: start: 20130410, end: 20130410
  48. GUAIFENESIN. [Concomitant]
     Active Substance: GUAIFENESIN
     Dosage: 5 TO 10 ML
     Route: 065
  49. SODIUM CHLORIDE. [Concomitant]
     Active Substance: SODIUM CHLORIDE
     Dosage: 1115 ML/125 MLS/HR, LAST ADMINISTERED DOSE 11/APR/2013
     Route: 042
     Dates: start: 20130411
  50. SODIUM CHLORIDE. [Concomitant]
     Active Substance: SODIUM CHLORIDE
     Dosage: 1 SYRINGE
     Route: 065
     Dates: start: 20130417, end: 20130417
  51. COUMADIN [Concomitant]
     Active Substance: WARFARIN SODIUM
     Dosage: 1 EA
     Route: 065
     Dates: start: 20130422, end: 20130427
  52. LANSOPRAZOLE. [Concomitant]
     Active Substance: LANSOPRAZOLE
     Route: 065
     Dates: start: 20130423, end: 20130427
  53. HEPARIN SODIUM. [Concomitant]
     Active Substance: HEPARIN SODIUM
     Dosage: BOLUS
     Route: 065
     Dates: start: 20130414, end: 20130425
  54. ETOMIDATE. [Concomitant]
     Active Substance: ETOMIDATE
     Route: 050
     Dates: start: 20130410, end: 20130410
  55. LORAZEPAM. [Concomitant]
     Active Substance: LORAZEPAM
     Route: 042
     Dates: start: 20130410, end: 20130427
  56. CARBOPLATIN. [Concomitant]
     Active Substance: CARBOPLATIN
     Indication: LUNG NEOPLASM MALIGNANT
  57. POTASSIUM CHLORIDE. [Concomitant]
     Active Substance: POTASSIUM CHLORIDE
     Dosage: 1115 ML/100 MLS/HR
     Route: 042
     Dates: start: 20130413, end: 20130413
  58. DEXTROSE. [Concomitant]
     Active Substance: DEXTROSE
     Dosage: 1115 ML/125 MLS/HR, LAST ADMINISTERED DOSE 11/APR/2013
     Route: 042
     Dates: start: 20130411
  59. DEXTROSE. [Concomitant]
     Active Substance: DEXTROSE
     Dosage: 103.4091 ML AT THE RATE 25.717
     Route: 042
     Dates: start: 20130420, end: 20130420
  60. ACETAMINOPHEN. [Concomitant]
     Active Substance: ACETAMINOPHEN
     Dosage: 100 ML AT THE RATE 400 MLS/HR
     Route: 042
     Dates: start: 20130411, end: 20130412
  61. HEPARIN SODIUM. [Concomitant]
     Active Substance: HEPARIN SODIUM
     Dosage: 4400 UNITS
     Route: 050
     Dates: start: 20130414, end: 20130414
  62. FAT EMULSION NOS [Concomitant]
     Active Substance: EGG PHOSPHOLIPIDS\SAFFLOWER OIL\SOYBEAN OIL
     Route: 042
     Dates: start: 20130411, end: 20130412
  63. LEVALBUTEROL HYDROCHLORIDE. [Concomitant]
     Active Substance: LEVALBUTEROL HYDROCHLORIDE
     Route: 065
     Dates: start: 20130419, end: 20130419
  64. TIOTROPIUM BROMIDE [Concomitant]
     Active Substance: TIOTROPIUM BROMIDE
     Route: 065
     Dates: start: 20130413, end: 20130413
  65. ROCURONIUM BROMIDE. [Concomitant]
     Active Substance: ROCURONIUM BROMIDE
     Route: 065
     Dates: start: 20130412, end: 20130412
  66. PANTOPRAZOLE [Concomitant]
     Active Substance: PANTOPRAZOLE
     Dosage: 100 ML AT THE RATE 20 MLS/HR
     Route: 042
     Dates: start: 20130410, end: 20130423
  67. PIPERACILLIN SODIUM/TAZOBACTAM [Concomitant]
     Active Substance: PIPERACILLIN SODIUM\TAZOBACTAM SODIUM
     Dosage: 50 ML AT THE RATE 100 MLS/HR
     Route: 042
     Dates: start: 20130410, end: 20130417
  68. HYDROMORPHONE HCL [Concomitant]
     Active Substance: HYDROMORPHONE HYDROCHLORIDE
     Route: 042
     Dates: start: 20130410, end: 20130410
  69. MAGNESIUM SULPHATE [Concomitant]
     Active Substance: MAGNESIUM SULFATE
     Dosage: 50 ML AT THE RATE 50 MLS/HR
     Route: 065
     Dates: start: 20130411, end: 20130411
  70. HEPARIN SODIUM. [Concomitant]
     Active Substance: HEPARIN SODIUM
     Dosage: 1 SYRINGE
     Route: 050
     Dates: start: 20130422, end: 20130427
  71. FAT EMULSION NOS [Concomitant]
     Active Substance: EGG PHOSPHOLIPIDS\SAFFLOWER OIL\SOYBEAN OIL
     Dosage: 250 ML AT THE RATE 21 MLS/HR
     Route: 042
     Dates: start: 20130416, end: 20130417
  72. ALBUTEROL SULFATE. [Concomitant]
     Active Substance: ALBUTEROL SULFATE
     Route: 065
     Dates: start: 20130408, end: 20130409
  73. GENTAMICIN SULFATE. [Concomitant]
     Active Substance: GENTAMICIN SULFATE
     Route: 065
     Dates: start: 20130410, end: 20130410
  74. FLUCONAZOLE. [Concomitant]
     Active Substance: FLUCONAZOLE
     Route: 042
  75. AVASTIN [Suspect]
     Active Substance: BEVACIZUMAB
     Indication: LUNG NEOPLASM MALIGNANT
     Route: 042
     Dates: start: 20130329, end: 20130401
  76. HYDROMORPHONE HCL [Concomitant]
     Active Substance: HYDROMORPHONE HYDROCHLORIDE
     Route: 065
     Dates: start: 20130410, end: 20130410
  77. IPRATROPIUM BROMIDE. [Concomitant]
     Active Substance: IPRATROPIUM BROMIDE
     Dosage: LAST ADMINISTERED DOSE 13/APR/2013
     Route: 065
     Dates: start: 20130411, end: 20130413
  78. SODIUM CHLORIDE. [Concomitant]
     Active Substance: SODIUM CHLORIDE
     Dosage: 1 TO 6 SYRINGES, 250 ML AT THE RATE 21 MLS/HR
     Route: 050
     Dates: start: 20130415, end: 20130415
  79. SODIUM CHLORIDE. [Concomitant]
     Active Substance: SODIUM CHLORIDE
     Dosage: 1115 ML AT THE RATE 100 MLS/HR, 1 SYRINGE,
     Route: 042
     Dates: start: 20130413, end: 20130413
  80. PACLITAXEL. [Concomitant]
     Active Substance: PACLITAXEL
     Indication: NON-SMALL CELL LUNG CANCER
     Route: 042
     Dates: start: 20130215
  81. PACLITAXEL. [Concomitant]
     Active Substance: PACLITAXEL
     Indication: LUNG NEOPLASM MALIGNANT
  82. SODIUM BICARBONATE. [Concomitant]
     Active Substance: SODIUM BICARBONATE
     Dosage: 1115 ML/125 MLS/HR, LAST ADMINISTERED DOSE 11/APR/2013
     Route: 042
     Dates: start: 20130411
  83. SODIUM BICARBONATE. [Concomitant]
     Active Substance: SODIUM BICARBONATE
     Dosage: 1115 ML AT THE RATE 100 MLS/HR
     Route: 042
     Dates: start: 20130413, end: 20130413
  84. POTASSIUM CHLORIDE. [Concomitant]
     Active Substance: POTASSIUM CHLORIDE
     Dosage: 270 ML AT THE RATE 67 MLS/HR
     Route: 042
     Dates: start: 20130411, end: 20130411
  85. ACETAMINOPHEN. [Concomitant]
     Active Substance: ACETAMINOPHEN
     Route: 048
     Dates: start: 20130416, end: 20130422
  86. FUROSEMIDE. [Concomitant]
     Active Substance: FUROSEMIDE
     Route: 042
     Dates: start: 20130413, end: 20130413
  87. FUROSEMIDE. [Concomitant]
     Active Substance: FUROSEMIDE
     Route: 065
     Dates: start: 20130413, end: 20130413
  88. SUCRALFATE. [Concomitant]
     Active Substance: SUCRALFATE
     Route: 048
     Dates: start: 20130420, end: 20130427
  89. LEVALBUTEROL HYDROCHLORIDE. [Concomitant]
     Active Substance: LEVALBUTEROL HYDROCHLORIDE
     Route: 065
     Dates: start: 20130409, end: 20130409
  90. PETROLATUM. [Concomitant]
     Active Substance: PETROLATUM
     Dosage: 2 APPLICATIONS
     Route: 065
     Dates: start: 20130416, end: 20130416
  91. MAGNESIUM HYDROXIDE. [Concomitant]
     Active Substance: MAGNESIUM HYDROXIDE
     Route: 048
  92. HYDROCORTISONE. [Concomitant]
     Active Substance: HYDROCORTISONE
     Route: 042
     Dates: start: 20130410, end: 20130410
  93. ALBUTEROL SULFATE. [Concomitant]
     Active Substance: ALBUTEROL SULFATE
     Route: 065
     Dates: start: 20130412, end: 20130412
  94. KETOROLAC [Concomitant]
     Active Substance: KETOROLAC\KETOROLAC TROMETHAMINE
     Route: 065
  95. VERSED (INJ) [Concomitant]
     Route: 065
     Dates: start: 20130410, end: 20130410
  96. SODIUM CHLORIDE. [Concomitant]
     Active Substance: SODIUM CHLORIDE
     Dosage: 1 TO 6 SYRINGES
     Route: 050
     Dates: start: 20130422, end: 20130427
  97. POTASSIUM CHLORIDE. [Concomitant]
     Active Substance: POTASSIUM CHLORIDE
     Dosage: 1115 ML/10 MLS/HR
     Route: 042
     Dates: start: 20130414, end: 20130415
  98. COUMADIN [Concomitant]
     Active Substance: WARFARIN SODIUM
     Route: 048
     Dates: start: 20130425, end: 20130425
  99. COUMADIN [Concomitant]
     Active Substance: WARFARIN SODIUM
     Route: 048
     Dates: start: 20130424, end: 20130424
  100. XYLOCAINE [Concomitant]
     Active Substance: LIDOCAINE HYDROCHLORIDE
     Dosage: TIDAC
     Route: 048
     Dates: start: 20130422, end: 20130423
  101. MORPHINE SULFATE. [Concomitant]
     Active Substance: MORPHINE SULFATE
     Route: 048
     Dates: start: 20130422, end: 20130423
  102. MORPHINE SULFATE. [Concomitant]
     Active Substance: MORPHINE SULFATE
     Route: 042
     Dates: start: 20130410, end: 20130427
  103. INSULIN HUMAN REGULAR [Concomitant]
     Active Substance: INSULIN HUMAN
     Route: 058
     Dates: start: 20130421, end: 20130422
  104. INSULIN HUMAN REGULAR [Concomitant]
     Active Substance: INSULIN HUMAN
     Route: 058
     Dates: start: 20130409, end: 20130411
  105. FAT EMULSION NOS [Concomitant]
     Active Substance: EGG PHOSPHOLIPIDS\SAFFLOWER OIL\SOYBEAN OIL
     Dosage: 250 ML AT THE RATE 21 MLS/HR
     Route: 042
     Dates: start: 20130415, end: 20130416
  106. FAT EMULSION NOS [Concomitant]
     Active Substance: EGG PHOSPHOLIPIDS\SAFFLOWER OIL\SOYBEAN OIL
     Dosage: 250 ML AT THE RATE 21 MLS/HR
     Route: 042
     Dates: start: 20130412, end: 20130413
  107. LEVALBUTEROL HYDROCHLORIDE. [Concomitant]
     Active Substance: LEVALBUTEROL HYDROCHLORIDE
     Route: 065
     Dates: start: 20130415, end: 20130415
  108. FENTANYL. [Concomitant]
     Active Substance: FENTANYL
     Route: 065
     Dates: start: 20130410, end: 20130410
  109. RANOLAZINE. [Concomitant]
     Active Substance: RANOLAZINE
     Route: 048
     Dates: start: 20130410, end: 20130410

REACTIONS (1)
  - Duodenal perforation [Recovered/Resolved]

NARRATIVE: CASE EVENT DATE: 20130410
